FAERS Safety Report 10371618 (Version 1)
Quarter: 2014Q3

REPORT INFORMATION
  Report Type: Spontaneous
  Country: AR (occurrence: AR)
  Receive Date: 20140808
  Receipt Date: 20140808
  Transmission Date: 20150326
  Serious: Yes (Death, Other)
  Sender: FDA-Public Use
  Company Number: AR-ACTELION-A-CH2014-103160

PATIENT
  Age: 17 Year

DRUGS (1)
  1. ZAVESCA [Suspect]
     Active Substance: MIGLUSTAT
     Indication: NIEMANN-PICK DISEASE
     Route: 048

REACTIONS (3)
  - Sepsis [Fatal]
  - Dysphagia [Unknown]
  - Gastric operation [Unknown]
